FAERS Safety Report 18042774 (Version 7)
Quarter: 2023Q2

REPORT INFORMATION
  Report Type: Spontaneous
  Country: DE (occurrence: DE)
  Receive Date: 20200720
  Receipt Date: 20230417
  Transmission Date: 20230722
  Serious: Yes (Hospitalization, Other)
  Sender: FDA-Public Use
  Company Number: PHHY2017DE199215

PATIENT
  Age: 60 Year
  Sex: Male
  Weight: 85 kg

DRUGS (13)
  1. DOCETAXEL [Suspect]
     Active Substance: DOCETAXEL
     Indication: Lung adenocarcinoma
     Dosage: 75 MG/M2
     Route: 042
     Dates: start: 20161024
  2. DOCETAXEL [Suspect]
     Active Substance: DOCETAXEL
     Dosage: 75 MG/M2, QD (FORM OF ADMIN: LIQUID)
     Route: 042
     Dates: start: 20191209, end: 20200210
  3. NINTEDANIB [Suspect]
     Active Substance: NINTEDANIB
     Indication: Lung adenocarcinoma
     Dosage: 400 MG
     Route: 048
     Dates: start: 20161025
  4. NINTEDANIB [Suspect]
     Active Substance: NINTEDANIB
     Dosage: 200 MG, BID
     Route: 065
     Dates: start: 20161025
  5. NINTEDANIB [Suspect]
     Active Substance: NINTEDANIB
     Dosage: 200 MG, BID
     Route: 048
     Dates: start: 20191210
  6. NINTEDANIB [Suspect]
     Active Substance: NINTEDANIB
     Dosage: 200 MG, Q12H
     Route: 048
     Dates: start: 20191210, end: 20210114
  7. NINTEDANIB [Suspect]
     Active Substance: NINTEDANIB
     Dosage: 100 MG, Q12H
     Route: 048
     Dates: start: 20200406, end: 20200622
  8. NINTEDANIB [Suspect]
     Active Substance: NINTEDANIB
     Dosage: 200 MG, Q12H
     Route: 048
     Dates: start: 20200623
  9. NINTEDANIB [Suspect]
     Active Substance: NINTEDANIB
     Dosage: 200 MG, Q12H
     Route: 048
     Dates: start: 20200623, end: 20200916
  10. NINTEDANIB [Suspect]
     Active Substance: NINTEDANIB
     Dosage: 150 MG, Q12H
     Route: 048
     Dates: start: 20200917
  11. NINTEDANIB [Suspect]
     Active Substance: NINTEDANIB
     Dosage: 150 MG, Q12H
     Route: 048
     Dates: start: 20200917
  12. NINTEDANIB [Suspect]
     Active Substance: NINTEDANIB
     Dosage: 200 MG, Q12H
     Route: 048
     Dates: start: 20201105
  13. NINTEDANIB [Suspect]
     Active Substance: NINTEDANIB
     Dosage: 150 MG, Q12H (1-0-1)
     Route: 048
     Dates: start: 20201117, end: 20210114

REACTIONS (33)
  - Cerebrovascular accident [Not Recovered/Not Resolved]
  - White blood cell count decreased [Recovered/Resolved]
  - White blood cell count decreased [Recovered/Resolved]
  - White blood cell count decreased [Recovered/Resolved]
  - White blood cell count decreased [Recovered/Resolved]
  - White blood cell count decreased [Recovered/Resolved]
  - White blood cell count decreased [Recovered/Resolved]
  - Platelet count increased [Recovered/Resolved]
  - Platelet count increased [Recovered/Resolved]
  - Peripheral sensory neuropathy [Recovered/Resolved]
  - Peripheral sensory neuropathy [Recovered/Resolved]
  - Peripheral sensory neuropathy [Unknown]
  - Peripheral sensory neuropathy [Recovered/Resolved]
  - Peripheral sensory neuropathy [Recovered/Resolved]
  - Peripheral sensory neuropathy [Not Recovered/Not Resolved]
  - Nausea [Recovered/Resolved]
  - Nausea [Recovered/Resolved]
  - Nausea [Not Recovered/Not Resolved]
  - Diarrhoea [Recovered/Resolved]
  - Diarrhoea [Recovered/Resolved]
  - Diarrhoea [Recovered/Resolved]
  - Decreased appetite [Unknown]
  - Dysgeusia [Not Recovered/Not Resolved]
  - Alopecia [Recovered/Resolved]
  - Lacrimation increased [Unknown]
  - Headache [Recovered/Resolved]
  - Gastrointestinal pain [Not Recovered/Not Resolved]
  - Oedema peripheral [Not Recovered/Not Resolved]
  - Weight decreased [Recovered/Resolved]
  - Weight decreased [Not Recovered/Not Resolved]
  - Peripheral sensory neuropathy [Not Recovered/Not Resolved]
  - Diarrhoea [Recovered/Resolved]
  - Diarrhoea [Recovered/Resolved]

NARRATIVE: CASE EVENT DATE: 20161114
